FAERS Safety Report 23096283 (Version 1)
Quarter: 2023Q4

REPORT INFORMATION
  Report Type: Spontaneous
  Country: FR (occurrence: FR)
  Receive Date: 20231023
  Receipt Date: 20231023
  Transmission Date: 20240110
  Serious: Yes (Hospitalization)
  Sender: FDA-Public Use
  Company Number: None

PATIENT
  Age: 65 Year
  Sex: Female
  Weight: 84 kg

DRUGS (3)
  1. CISPLATIN [Suspect]
     Active Substance: CISPLATIN
     Indication: Anal cancer
     Dosage: C1
     Dates: start: 20230724, end: 20230724
  2. DOCETAXEL [Suspect]
     Active Substance: DOCETAXEL
     Indication: Anal cancer
     Dosage: C1
     Dates: start: 20230724, end: 20230724
  3. FLUOROURACIL [Suspect]
     Active Substance: FLUOROURACIL
     Indication: Anal cancer
     Dosage: C1
     Dates: start: 20230724, end: 20230726

REACTIONS (1)
  - Colitis ulcerative [Recovered/Resolved with Sequelae]

NARRATIVE: CASE EVENT DATE: 20230729
